FAERS Safety Report 5901270-0 (Version None)
Quarter: 2008Q3

REPORT INFORMATION
  Report Type: 
  Country: None (occurrence: None)
  Receive Date: 20080929
  Receipt Date: 20080804
  Transmission Date: 20090109
  Serious: Yes (Other)
  Sender: FDA-Public Use
  Company Number: US-BRISTOL-MYERS SQUIBB COMPANY-14285886

PATIENT

DRUGS (1)
  1. ORENCIA [Suspect]

REACTIONS (1)
  - LUNG NEOPLASM MALIGNANT [None]
